FAERS Safety Report 4515764-6 (Version None)
Quarter: 2004Q4

REPORT INFORMATION
  Report Type: 
  Country: None (occurrence: None)
  Receive Date: 20041129
  Receipt Date: 20041110
  Transmission Date: 20050328
  Serious: Yes (Disabling, Other)
  Sender: FDA-Public Use
  Company Number: DSA_25383_2004

PATIENT
  Age: 70 Year
  Sex: Female

DRUGS (2)
  1. RENIVACE [Suspect]
     Dosage: 2.5 MG Q DAY PO
     Route: 048
  2. CYANOCOBALAMIN [Concomitant]

REACTIONS (5)
  - ASTHENIA [None]
  - HYPOAESTHESIA [None]
  - PRURITUS GENERALISED [None]
  - THROAT IRRITATION [None]
  - TYMPANIC MEMBRANE PERFORATION [None]
